FAERS Safety Report 4547247-1 (Version None)
Quarter: 2005Q1

REPORT INFORMATION
  Report Type: 
  Country: None (occurrence: None)
  Receive Date: 20050105
  Receipt Date: 20041228
  Transmission Date: 20050727
  Serious: Yes (Death, Hospitalization)
  Sender: FDA-Public Use
  Company Number: DEWYE019207SEP04

PATIENT
  Sex: Male

DRUGS (2)
  1. EFFEXOR XR [Suspect]
     Indication: DEPRESSION
     Dosage: 75 MG 2X PER 1 DAY ORAL
     Route: 048
  2. REMERGIL (MIRTAZAPINE) [Concomitant]

REACTIONS (5)
  - CEREBRAL HAEMORRHAGE [None]
  - CONTUSION [None]
  - DRUG WITHDRAWAL SYNDROME [None]
  - FALL [None]
  - HEAD INJURY [None]
